FAERS Safety Report 7859454-0 (Version None)
Quarter: 2011Q4

REPORT INFORMATION
  Report Type: 
  Country: None (occurrence: None)
  Receive Date: 20111020
  Receipt Date: 20111013
  Transmission Date: 20120403
  Serious: Yes (Life-Threatening)
  Sender: FDA-Public Use
  Company Number: 2011030098

PATIENT
  Sex: Male
  Weight: 81.6475 kg

DRUGS (4)
  1. HIZENTRA [Suspect]
  2. HIZENTRA [Suspect]
     Indication: HYPOGAMMAGLOBULINAEMIA
     Dosage: 5 G 1X/WEEK SUBCUTANEOUS
     Route: 058
     Dates: start: 20110601
  3. HIZENTRA [Suspect]
  4. HIZENTRA [Suspect]

REACTIONS (5)
  - ALANINE AMINOTRANSFERASE INCREASED [None]
  - HEPATITIS B CORE ANTIBODY POSITIVE [None]
  - HEPATITIS A ANTIBODY POSITIVE [None]
  - HEPATITIS B SURFACE ANTIBODY POSITIVE [None]
  - ASPARTATE AMINOTRANSFERASE INCREASED [None]
